FAERS Safety Report 5899216-7 (Version None)
Quarter: 2008Q3

REPORT INFORMATION
  Report Type: 
  Country: None (occurrence: None)
  Receive Date: 20080902
  Receipt Date: 20071024
  Transmission Date: 20090109
  Serious: Yes (Hospitalization)
  Sender: FDA-Public Use
  Company Number: KADN20070101

PATIENT
  Age: 57 Year
  Sex: Male
  Weight: 90.7194 kg

DRUGS (1)
  1. KADIAN [Suspect]
     Indication: BACK PAIN
     Dosage: 30 CAPSULES, ONCE, PER ORAL
     Route: 048
     Dates: start: 20071023, end: 20071023

REACTIONS (3)
  - LETHARGY [None]
  - NAUSEA [None]
  - OVERDOSE [None]
